FAERS Safety Report 9381338 (Version 1)
Quarter: 2013Q3

REPORT INFORMATION
  Report Type: Spontaneous
  Country: US (occurrence: US)
  Receive Date: 20130703
  Receipt Date: 20130703
  Transmission Date: 20140515
  Serious: No
  Sender: FDA-Public Use
  Company Number: US-ASTRAZENECA-2013SE41940

PATIENT
  Sex: Female

DRUGS (2)
  1. ARIMIDEX [Suspect]
     Indication: BREAST CANCER
     Route: 048
     Dates: start: 20110914, end: 201305
  2. SYNTHYROID [Suspect]
     Route: 065
     Dates: start: 1963

REACTIONS (17)
  - Drug withdrawal syndrome [Unknown]
  - Migraine [Unknown]
  - Hair texture abnormal [Unknown]
  - Vision blurred [Recovered/Resolved]
  - Abdominal distension [Recovered/Resolved]
  - Constipation [Recovered/Resolved]
  - Pain [Unknown]
  - Activities of daily living impaired [Unknown]
  - Pain in extremity [Unknown]
  - Limb discomfort [Unknown]
  - Pain in extremity [Unknown]
  - Drug resistance [Unknown]
  - Pain [Unknown]
  - Headache [Unknown]
  - Alopecia [Unknown]
  - Bone pain [Unknown]
  - Arthralgia [Unknown]
